FAERS Safety Report 21217638 (Version 2)
Quarter: 2023Q4

REPORT INFORMATION
  Report Type: Spontaneous
  Country: CA (occurrence: CA)
  Receive Date: 20220816
  Receipt Date: 20231114
  Transmission Date: 20240109
  Serious: Yes (Other)
  Sender: FDA-Public Use
  Company Number: CA-PFIZER INC-202101524517

PATIENT
  Age: 15 Year
  Sex: Female
  Weight: 94 kg

DRUGS (15)
  1. XELJANZ [Suspect]
     Active Substance: TOFACITINIB CITRATE
     Indication: Colitis ulcerative
     Dosage: 10 MG, 2X/DAY (8 WEEKS THEN 5 MG BID FOR MAINTENANCE)
     Route: 048
     Dates: start: 2021
  2. XELJANZ [Suspect]
     Active Substance: TOFACITINIB CITRATE
     Dosage: 5 MG, 2X/DAY
     Route: 048
     Dates: start: 20211208
  3. EBASTINE [Concomitant]
     Active Substance: EBASTINE
     Dosage: 5 MG, DAILY (OD)
  4. BILASTINE [Concomitant]
     Active Substance: BILASTINE
     Dosage: 80 MG
  5. CALCIUM [Concomitant]
     Active Substance: CALCIUM
     Dosage: 1500 MG, DAILY
  6. FERAMAX [Concomitant]
     Active Substance: IRON\POLYSACCHARIDES
     Dosage: 150 MG, DAILY
  7. FOLIC ACID [Concomitant]
     Active Substance: FOLIC ACID
     Dosage: 1 MG, DAILY
  8. HYDROCHLOROTHIAZIDE [Concomitant]
     Active Substance: HYDROCHLOROTHIAZIDE
     Indication: Hypertension
     Dosage: 50 MG, DAILY
     Dates: start: 202111
  9. NORETHINDRONE [Concomitant]
     Active Substance: NORETHINDRONE
     Indication: Menstruation delayed
     Dosage: 1 TABLET, DAILY
     Dates: start: 202111
  10. REACTINE [Concomitant]
     Dosage: 40 MG, 2X/DAY (BID)
  11. RUPATADINE FUMARATE [Concomitant]
     Active Substance: RUPATADINE FUMARATE
     Dosage: 5 MG
  12. VITAMIN D3 [Concomitant]
     Active Substance: CHOLECALCIFEROL
     Dosage: 1000 IU, DAILY
  13. VYVANSE [Concomitant]
     Active Substance: LISDEXAMFETAMINE DIMESYLATE
     Indication: Attention deficit hyperactivity disorder
     Dosage: 40 MG, DAILY
     Dates: start: 2018
  14. XOLAIR [Concomitant]
     Active Substance: OMALIZUMAB
     Dosage: 1 DF, MONTHLY
  15. ZANTAC [Concomitant]
     Active Substance: RANITIDINE HYDROCHLORIDE
     Dosage: 150 MG, DAILY (OD)

REACTIONS (4)
  - Chronic spontaneous urticaria [Not Recovered/Not Resolved]
  - Condition aggravated [Not Recovered/Not Resolved]
  - Sensitivity to weather change [Unknown]
  - Off label use [Unknown]

NARRATIVE: CASE EVENT DATE: 20210101
